FAERS Safety Report 7586475-8 (Version None)
Quarter: 2011Q3

REPORT INFORMATION
  Report Type: 
  Country: None (occurrence: None)
  Receive Date: 20110701
  Receipt Date: 20110601
  Transmission Date: 20111222
  Serious: Yes (Other)
  Sender: FDA-Public Use
  Company Number: US-BAYER-2011-048439

PATIENT
  Age: 33 Year
  Sex: Female
  Weight: 86.168 kg

DRUGS (5)
  1. CEPHALEXIN [Concomitant]
     Route: 048
  2. SPIRONOLACTONE [Concomitant]
  3. LUMIGAN [Concomitant]
  4. ISTATOL [Concomitant]
  5. YASMIN [Suspect]
     Indication: POLYCYSTIC OVARIES
     Dosage: UNK
     Dates: start: 20050501, end: 20071101

REACTIONS (4)
  - CHOLECYSTITIS [None]
  - INJURY [None]
  - GALLBLADDER DISORDER [None]
  - ABDOMINAL PAIN [None]
